FAERS Safety Report 5490572-0 (Version None)
Quarter: 2007Q4

REPORT INFORMATION
  Report Type: 
  Country: None (occurrence: None)
  Receive Date: 20071019
  Receipt Date: 20071009
  Transmission Date: 20080405
  Serious: Yes (Other)
  Sender: FDA-Public Use
  Company Number: CZ-JNJFOC-20070805383

PATIENT
  Sex: Female

DRUGS (5)
  1. DURAGESIC-100 [Suspect]
     Dosage: 2X25UG PATCHES
     Route: 062
  2. DURAGESIC-100 [Suspect]
     Route: 062
  3. DURAGESIC-100 [Suspect]
     Indication: BACK PAIN
     Route: 062
  4. AMLODIPINE [Concomitant]
     Indication: HYPERTENSION
  5. OTHER DRUGS [Concomitant]

REACTIONS (11)
  - BLOOD PRESSURE INCREASED [None]
  - DYSPNOEA [None]
  - FATIGUE [None]
  - HEADACHE [None]
  - INCORRECT DRUG ADMINISTRATION RATE [None]
  - INSOMNIA [None]
  - MYOCARDIAL ISCHAEMIA [None]
  - NARCOTIC INTOXICATION [None]
  - NAUSEA [None]
  - PARAESTHESIA [None]
  - RESTLESSNESS [None]
